FAERS Safety Report 10543245 (Version 1)
Quarter: 2014Q4

REPORT INFORMATION
  Report Type: Spontaneous
  Country: US (occurrence: None)
  Receive Date: 20141023
  Receipt Date: 20141023
  Transmission Date: 20150529
  Serious: Yes (Hospitalization)
  Sender: FDA-Public Use
  Company Number: VAL_03484_2014

PATIENT
  Sex: Female
  Weight: 77.11 kg

DRUGS (7)
  1. HYDRALAZINE [Suspect]
     Active Substance: HYDRALAZINE HYDROCHLORIDE
     Indication: HYPERTENSION
  2. ZIPRASIDONE [Suspect]
     Active Substance: ZIPRASIDONE
     Indication: SCHIZOPHRENIA
  3. AMLODIPINE [Suspect]
     Active Substance: AMLODIPINE BESYLATE
     Indication: HYPERTENSION
  4. HALDOL [Suspect]
     Active Substance: HALOPERIDOL
     Indication: SCHIZOPHRENIA
     Dosage: AT NIGHT
  5. HALDOL [Suspect]
     Active Substance: HALOPERIDOL
     Indication: MENTAL DISABILITY
     Dosage: AT NIGHT
  6. CLONIDINE. [Suspect]
     Active Substance: CLONIDINE
     Indication: HYPERTENSION
  7. METOPROLOL [Suspect]
     Active Substance: METOPROLOL
     Indication: HYPERTENSION
     Dates: start: 2000

REACTIONS (9)
  - Dizziness [None]
  - Somnolence [None]
  - Hyperhidrosis [None]
  - Mental disorder [None]
  - Fatigue [None]
  - Feeling abnormal [None]
  - Blood pressure increased [None]
  - Electrolyte imbalance [None]
  - Blood cholesterol increased [None]

NARRATIVE: CASE EVENT DATE: 2012
